FAERS Safety Report 8247342-X (Version None)
Quarter: 2012Q1

REPORT INFORMATION
  Report Type: 
  Country: None (occurrence: None)
  Receive Date: 20120330
  Receipt Date: 20120320
  Transmission Date: 20120608
  Serious: Yes (Other)
  Sender: FDA-Public Use
  Company Number: US-BAYER-2012-027665

PATIENT

DRUGS (3)
  1. CAFFEINE [Suspect]
     Dosage: 2 DF, ONCE
     Route: 048
     Dates: start: 20120313
  2. CAFFEINE [Suspect]
     Indication: EXERCISE ADEQUATE
     Dosage: 1 DF, ONCE
     Route: 048
     Dates: start: 20120312, end: 20120312
  3. BRONKAID MIST [Suspect]
     Indication: EXERCISE ADEQUATE
     Dosage: 0.5 DF, QD
     Route: 048
     Dates: start: 20120312

REACTIONS (6)
  - BURNING SENSATION [None]
  - TUNNEL VISION [None]
  - ABNORMAL DREAMS [None]
  - FEELING HOT [None]
  - DISTURBANCE IN ATTENTION [None]
  - SOCIAL PROBLEM [None]
